FAERS Safety Report 9510603 (Version 1)
Quarter: 2013Q3

REPORT INFORMATION
  Report Type: Report from Study
  Country: US (occurrence: US)
  Receive Date: 20130909
  Receipt Date: 20130909
  Transmission Date: 20140515
  Serious: Yes (Death, Hospitalization, Other)
  Sender: FDA-Public Use
  Company Number: US-GENZYME-CLOF-1002772

PATIENT
  Age: 67 Year
  Sex: Male
  Weight: 88 kg

DRUGS (1)
  1. CLOLAR [Suspect]
     Indication: ACUTE MYELOID LEUKAEMIA
     Dosage: 66 MG IN NORMAL SALINE, TOTAL VOLUME 351 ML, IVPB DAILY FOR 5 DOSES
     Route: 042
     Dates: start: 20120820, end: 20120824

REACTIONS (5)
  - Atrial fibrillation [Unknown]
  - Respiratory failure [Fatal]
  - Staphylococcal sepsis [Fatal]
  - Multi-organ failure [Not Recovered/Not Resolved]
  - Renal failure acute [Fatal]
